FAERS Safety Report 8519207-7 (Version None)
Quarter: 2012Q3

REPORT INFORMATION
  Report Type: 
  Country: None (occurrence: None)
  Receive Date: 20120709
  Receipt Date: 20120625
  Transmission Date: 20120928
  Serious: Yes (Hospitalization)
  Sender: FDA-Public Use
  Company Number: JPI-P-022140

PATIENT
  Age: 63 Year
  Sex: Female

DRUGS (4)
  1. XYREM [Suspect]
     Indication: PRODUCT USED FOR UNKNOWN INDICATION
     Dosage: 4.5;6;7.5;9 GM (2.25 GM, 2 I N1 D), ORAL
     Route: 048
     Dates: start: 20070726, end: 20071017
  2. XYREM [Suspect]
     Indication: PRODUCT USED FOR UNKNOWN INDICATION
     Dosage: 4.5;6;7.5;9 GM (2.25 GM, 2 I N1 D), ORAL
     Route: 048
     Dates: start: 20061113, end: 20070621
  3. XYREM [Suspect]
     Indication: PRODUCT USED FOR UNKNOWN INDICATION
     Dosage: 4.5;6;7.5;9 GM (2.25 GM, 2 I N1 D), ORAL
     Route: 048
     Dates: start: 20070622, end: 20070725
  4. XYREM [Suspect]
     Indication: PRODUCT USED FOR UNKNOWN INDICATION
     Dosage: 4.5;6;7.5;9 GM (2.25 GM, 2 I N1 D), ORAL
     Route: 048
     Dates: start: 20071018

REACTIONS (1)
  - CORONARY ARTERY BYPASS [None]
